FAERS Safety Report 23332538 (Version 1)
Quarter: 2023Q4

REPORT INFORMATION
  Report Type: Spontaneous
  Country: US (occurrence: US)
  Receive Date: 20231222
  Receipt Date: 20231222
  Transmission Date: 20240109
  Serious: Yes (Other)
  Sender: FDA-Public Use
  Company Number: US-SANDOZ-SDZ2023US070754

PATIENT
  Age: 54 Year
  Sex: Male

DRUGS (1)
  1. LINEZOLID [Suspect]
     Active Substance: LINEZOLID
     Indication: Disseminated tuberculosis
     Dosage: UNK
     Route: 065

REACTIONS (1)
  - Thrombocytopenia [Not Recovered/Not Resolved]
